FAERS Safety Report 15882921 (Version 1)
Quarter: 2019Q1

REPORT INFORMATION
  Report Type: Spontaneous
  Country: US (occurrence: US)
  Receive Date: 20190129
  Receipt Date: 20190129
  Transmission Date: 20190417
  Serious: No
  Sender: FDA-Public Use
  Company Number: US-TEVA-2019-US-997872

PATIENT
  Sex: Male
  Weight: 97.61 kg

DRUGS (4)
  1. SIMVASTATIN. [Concomitant]
     Active Substance: SIMVASTATIN
  2. CLOZAPINE. [Suspect]
     Active Substance: CLOZAPINE
     Indication: HALLUCINATION, AUDITORY
     Dosage: 100MG IN THE MORNING AND 100MG AT NIGHT
     Route: 065
     Dates: start: 201810
  3. NORVASC [Concomitant]
     Active Substance: AMLODIPINE BESYLATE
  4. CLOZAPINE. [Suspect]
     Active Substance: CLOZAPINE
     Dosage: 100MG IN THE MORNING AND 200MG AT NIGHT
     Route: 065

REACTIONS (10)
  - Dental caries [Unknown]
  - Libido decreased [Unknown]
  - Feeling hot [Unknown]
  - Feeling abnormal [Unknown]
  - Night sweats [Unknown]
  - Drooling [Not Recovered/Not Resolved]
  - Dysuria [Unknown]
  - Nocturnal dyspnoea [Unknown]
  - Overdose [Unknown]
  - Product use in unapproved indication [Unknown]

NARRATIVE: CASE EVENT DATE: 2018
